FAERS Safety Report 10670571 (Version 1)
Quarter: 2014Q4

REPORT INFORMATION
  Report Type: Spontaneous
  Country: US (occurrence: None)
  Receive Date: 20141208
  Receipt Date: 20141208
  Transmission Date: 20150529
  Serious: Yes (Hospitalization)
  Sender: FDA-Public Use
  Company Number: 2014TUS008803

PATIENT
  Age: 72 Year
  Sex: Male
  Weight: 81.6 kg

DRUGS (7)
  1. XANAX [Suspect]
     Active Substance: ALPRAZOLAM
     Indication: ANXIETY
     Route: 048
     Dates: start: 200709, end: 201407
  2. SINGULAIR (MONTELUKAST SODIUM) [Concomitant]
  3. ETHANOL [Suspect]
     Active Substance: ALCOHOL
     Indication: PRODUCT USED FOR UNKNOWN INDICATION
  4. BRINTELLIX [Suspect]
     Active Substance: VORTIOXETINE HYDROBROMIDE
     Indication: DEPRESSION
     Dates: start: 201407, end: 201407
  5. TENORMIN [Concomitant]
     Active Substance: ATENOLOL
  6. DIOVAN HCT (HYDROCHLOROTHIAZIDE, VALSARTAN) [Concomitant]
  7. WELLBUTRIN [Suspect]
     Active Substance: BUPROPION HYDROCHLORIDE
     Indication: DEPRESSION
     Route: 048
     Dates: start: 201407, end: 201407

REACTIONS (8)
  - Somnolence [None]
  - Formication [None]
  - Anxiety [None]
  - Overdose [None]
  - Drug intolerance [None]
  - Drug ineffective [None]
  - Unevaluable event [None]
  - Mood altered [None]

NARRATIVE: CASE EVENT DATE: 2014
